FAERS Safety Report 7818630-3 (Version None)
Quarter: 2011Q4

REPORT INFORMATION
  Report Type: 
  Country: None (occurrence: None)
  Receive Date: 20111017
  Receipt Date: 20111007
  Transmission Date: 20120403
  Serious: Yes (Hospitalization, Other)
  Sender: FDA-Public Use
  Company Number: US-ASTRAZENECA-2011SE53754

PATIENT
  Age: 57 Year
  Sex: Male

DRUGS (4)
  1. TOPROL-XL [Suspect]
     Route: 048
     Dates: start: 19990101
  2. TOPROL-XL [Interacting]
     Route: 048
  3. MULTAQ [Interacting]
  4. BETAPACE [Concomitant]

REACTIONS (7)
  - DRUG INTERACTION [None]
  - DRUG TOLERANCE [None]
  - LIVER DISORDER [None]
  - RENAL DISORDER [None]
  - TACHYCARDIA [None]
  - JAUNDICE [None]
  - HEART RATE INCREASED [None]
